FAERS Safety Report 11716454 (Version 2)
Quarter: 2015Q4

REPORT INFORMATION
  Report Type: Spontaneous
  Country: US (occurrence: US)
  Receive Date: 20151104
  Receipt Date: 20151110
  Transmission Date: 20160304
  Serious: No
  Sender: FDA-Public Use
  Company Number: US-ELI_LILLY_AND_COMPANY-US201104003244

PATIENT
  Age: 54 Year
  Sex: Male

DRUGS (2)
  1. FORTEO [Suspect]
     Active Substance: TERIPARATIDE
     Indication: OSTEOPOROSIS
     Dosage: 20 UG, QD
     Dates: start: 20110407
  2. FORTEO [Suspect]
     Active Substance: TERIPARATIDE
     Dosage: 20 UG, QD

REACTIONS (5)
  - Injection site haemorrhage [Unknown]
  - Dizziness [Recovering/Resolving]
  - Headache [Not Recovered/Not Resolved]
  - Asthenia [Unknown]
  - Injection site pain [Unknown]

NARRATIVE: CASE EVENT DATE: 20110407
